FAERS Safety Report 9824373 (Version 2)
Quarter: 2015Q3

REPORT INFORMATION
  Report Type: Spontaneous
  Country: US (occurrence: US)
  Receive Date: 20140116
  Receipt Date: 20150810
  Transmission Date: 20151125
  Serious: No
  Sender: FDA-Public Use
  Company Number: US-GILEAD-2011-0039836

PATIENT
  Age: 59 Year
  Sex: Male

DRUGS (2)
  1. TYVASO [Concomitant]
     Active Substance: TREPROSTINIL
  2. LETAIRIS [Suspect]
     Active Substance: AMBRISENTAN
     Indication: PRODUCT USED FOR UNKNOWN INDICATION
     Route: 048
     Dates: start: 20110513, end: 20110516

REACTIONS (3)
  - Headache [Recovering/Resolving]
  - Abdominal pain [Recovering/Resolving]
  - Unevaluable event [Recovering/Resolving]
